FAERS Safety Report 20051385 (Version 1)
Quarter: 2021Q4

REPORT INFORMATION
  Report Type: Spontaneous
  Country: IT (occurrence: IT)
  Receive Date: 20211110
  Receipt Date: 20211110
  Transmission Date: 20220303
  Serious: Yes (Death, Life-Threatening, Hospitalization, Other)
  Sender: FDA-Public Use
  Company Number: IT-MLMSERVICE-2021102131801081

PATIENT
  Age: 32 Year
  Sex: Female

DRUGS (2)
  1. MYCOPHENOLIC ACID [Suspect]
     Active Substance: MYCOPHENOLIC ACID
     Indication: Urticarial vasculitis
  2. AZATHIOPRINE [Suspect]
     Active Substance: AZATHIOPRINE
     Indication: Urticarial vasculitis

REACTIONS (13)
  - Infective aortitis [Fatal]
  - Endocarditis [Fatal]
  - Cerebral haemorrhage [Fatal]
  - Coronary artery embolism [Fatal]
  - Pyelonephritis [Fatal]
  - Listeriosis [Fatal]
  - Infective aneurysm [Fatal]
  - Condition aggravated [Fatal]
  - Septic embolus [Fatal]
  - Systemic infection [Fatal]
  - Cerebral artery embolism [Fatal]
  - Brain oedema [Fatal]
  - Off label use [Unknown]
